FAERS Safety Report 7645571-7 (Version None)
Quarter: 2011Q3

REPORT INFORMATION
  Report Type: 
  Country: None (occurrence: None)
  Receive Date: 20110729
  Receipt Date: 20110726
  Transmission Date: 20111222
  Serious: Yes (Hospitalization, Other)
  Sender: FDA-Public Use
  Company Number: US-PFIZER INC-2011100842

PATIENT
  Sex: Male

DRUGS (10)
  1. OXYCODONE [Concomitant]
     Indication: ANALGESIC THERAPY
     Dosage: UNK
     Dates: start: 20040101, end: 20090101
  2. FLUOCINONIDE [Concomitant]
     Dosage: UNK
     Dates: start: 20040101, end: 20080101
  3. CHANTIX [Suspect]
     Indication: SMOKING CESSATION THERAPY
     Dosage: STARTING PACK AND TWO CONTINUING PACKS
     Dates: start: 20071114, end: 20071215
  4. IBUPROFEN [Concomitant]
     Dosage: UNK
     Dates: start: 20020101, end: 20080101
  5. AMITRIPTYLINE [Concomitant]
     Indication: DEPRESSION
     Dosage: UNK
     Dates: start: 20020101, end: 20090101
  6. OMEPRAZOLE [Concomitant]
     Indication: GASTROOESOPHAGEAL REFLUX DISEASE
     Dosage: UNK
     Dates: start: 20030101, end: 20090101
  7. CEPHALEXIN [Concomitant]
     Indication: ANTIBIOTIC THERAPY
     Dosage: UNK
     Dates: start: 20060101, end: 20090101
  8. SIMVASTATIN [Concomitant]
     Indication: BLOOD CHOLESTEROL INCREASED
     Dosage: UNK
     Dates: start: 20060101, end: 20090101
  9. NITROGLYCERIN [Concomitant]
     Indication: CHEST PAIN
     Dosage: UNK
     Dates: start: 20050101, end: 20080101
  10. CHANTIX [Suspect]
     Dosage: STARTING PACK AND TWO CONTINUING PACKS
     Dates: end: 20080101

REACTIONS (2)
  - DEPRESSION [None]
  - AGGRESSION [None]
